FAERS Safety Report 24344379 (Version 1)
Quarter: 2024Q3

REPORT INFORMATION
  Report Type: Spontaneous
  Country: US (occurrence: None)
  Receive Date: 20240920
  Receipt Date: 20240920
  Transmission Date: 20241016
  Serious: Yes (Hospitalization)
  Sender: Public
  Company Number: None

PATIENT
  Sex: Female

DRUGS (2)
  1. CAPECITABINE [Suspect]
     Active Substance: CAPECITABINE
     Indication: Neuroendocrine tumour
     Dosage: FREQUENCY : AS DIRECTED;?
     Route: 048
     Dates: start: 202406
  2. TEMOZOLOMIDE [Suspect]
     Active Substance: TEMOZOLOMIDE
     Indication: Neuroendocrine tumour
     Dosage: FREQUENCY : AS DIRECTED;?
     Route: 048
     Dates: start: 202406

REACTIONS (5)
  - Nausea [None]
  - Diarrhoea [None]
  - Fatigue [None]
  - Decreased appetite [None]
  - Disturbance in attention [None]
